FAERS Safety Report 6618105-3 (Version None)
Quarter: 2010Q1

REPORT INFORMATION
  Report Type: 
  Country: None (occurrence: None)
  Receive Date: 20100308
  Receipt Date: 20100302
  Transmission Date: 20100710
  Serious: Yes (Hospitalization, Other)
  Sender: FDA-Public Use
  Company Number: CA-BAYER-201015430NA

PATIENT
  Age: 41 Year
  Sex: Female
  Weight: 68 kg

DRUGS (1)
  1. YASMIN [Suspect]
     Indication: DRUG USE FOR UNKNOWN INDICATION
     Dosage: ACCORDING TO SOURCE DOCUMENT THERAPY DURATION: 10 MONTHS. FREQUENCY: CYCLICAL
     Route: 065

REACTIONS (1)
  - GALLBLADDER PAIN [None]
